FAERS Safety Report 4639121-7 (Version None)
Quarter: 2005Q2

REPORT INFORMATION
  Report Type: 
  Country: None (occurrence: None)
  Receive Date: 20050419
  Receipt Date: 20050411
  Transmission Date: 20051028
  Serious: Yes (Hospitalization)
  Sender: FDA-Public Use
  Company Number: US-MERCK-0504USA01869

PATIENT
  Age: 46 Year
  Sex: Male

DRUGS (12)
  1. LITHIUM GLUCONATE [Suspect]
     Route: 048
     Dates: start: 20040209, end: 20040418
  2. FOSINOPRIL SODIUM [Concomitant]
     Route: 048
     Dates: start: 20030101, end: 20040810
  3. LITHIUM GLUCONATE [Suspect]
     Route: 048
     Dates: start: 20040419, end: 20040809
  4. LITHIUM GLUCONATE [Suspect]
     Route: 048
     Dates: start: 20040810, end: 20041026
  5. HALOPERIDOL [Concomitant]
     Route: 065
  6. BENZTROPINE MESYLATE [Concomitant]
     Route: 065
  7. OLANZAPINE [Concomitant]
     Route: 065
  8. CLONAZEPAM [Concomitant]
     Route: 065
  9. DIVALPROEX SODIUM [Concomitant]
     Route: 065
  10. ZOCOR [Concomitant]
     Route: 048
  11. ATENOLOL [Concomitant]
     Route: 065
     Dates: end: 20041001
  12. PRINIVIL [Suspect]
     Route: 048
     Dates: start: 20040810, end: 20041026

REACTIONS (6)
  - BLOOD CREATININE INCREASED [None]
  - BLOOD POTASSIUM INCREASED [None]
  - BRADYCARDIA [None]
  - DRUG INTERACTION [None]
  - SALIVARY HYPERSECRETION [None]
  - THERAPEUTIC AGENT TOXICITY [None]
